FAERS Safety Report 9776222 (Version 1)
Quarter: 2013Q4

REPORT INFORMATION
  Report Type: Report from Study
  Country: NL (occurrence: NL)
  Receive Date: 20131220
  Receipt Date: 20131220
  Transmission Date: 20140711
  Serious: No
  Sender: FDA-Public Use
  Company Number: NL-B.I. PHARMACEUTICALS,INC./RIDGEFIELD-2013-BI-42432NL

PATIENT
  Age: 66 Year
  Sex: Female
  Weight: 98 kg

DRUGS (13)
  1. TRAJENTA [Suspect]
     Indication: DIABETES MELLITUS
     Dosage: 5 MG
     Dates: start: 20131129, end: 20131206
  2. PANTOPRAZOL [Concomitant]
     Dosage: 40 MG
     Dates: start: 20061129
  3. GLIMEPIRIDE [Concomitant]
     Dosage: 6 MG
     Dates: start: 20101101
  4. CARBASALAATCALCIUM CARDIO SACHET [Concomitant]
     Dosage: 100 MG
     Dates: start: 20121220
  5. ENALAPRIL MALEAAT [Concomitant]
     Dates: start: 20090526
  6. FOSAVANCE [Concomitant]
     Dosage: 70MG/5600IU
     Dates: start: 20081201
  7. VIDISIC CARBOGEL [Concomitant]
     Dosage: 2MG/G
     Dates: start: 20100317
  8. DURATEARS [Concomitant]
     Dates: start: 20070226
  9. GABAPENTINE [Concomitant]
     Dosage: 900 MG
     Dates: start: 20090624
  10. GABAPENTINE [Concomitant]
     Dosage: 600 MG
     Dates: start: 20110616
  11. PARACETAMOL [Concomitant]
     Dosage: 3000 MG
     Dates: start: 20131101
  12. ARTIFICIAL TEARS [Concomitant]
  13. OTHER INDIFFERENT PREPARATIONS [Concomitant]

REACTIONS (3)
  - Angioedema [Unknown]
  - Rash [Unknown]
  - Dyspnoea [Unknown]
